FAERS Safety Report 7409652-5 (Version None)
Quarter: 2011Q2

REPORT INFORMATION
  Report Type: 
  Country: None (occurrence: None)
  Receive Date: 20110412
  Receipt Date: 20110321
  Transmission Date: 20111010
  Serious: Yes (Hospitalization, Other)
  Sender: FDA-Public Use
  Company Number: US-BAYER-2010-002554

PATIENT
  Age: 22 Year
  Sex: Female
  Weight: 83.9 kg

DRUGS (4)
  1. ADVIL LIQUI-GELS [Concomitant]
     Indication: BACK PAIN
  2. ADVIL LIQUI-GELS [Concomitant]
     Indication: HEADACHE
     Dosage: 1-2 TABLETS, AS NEEDED
  3. ANTIBIOTICS [Concomitant]
     Indication: CELLULITIS
     Dosage: UNK
     Route: 042
  4. YAZ [Suspect]
     Indication: PRODUCT USED FOR UNKNOWN INDICATION
     Dosage: UNK
     Dates: start: 20070501, end: 20070801

REACTIONS (1)
  - DEEP VEIN THROMBOSIS [None]
